FAERS Safety Report 10368444 (Version 1)
Quarter: 2014Q3

REPORT INFORMATION
  Report Type: Spontaneous
  Country: US (occurrence: US)
  Receive Date: 20140807
  Receipt Date: 20140807
  Transmission Date: 20150326
  Serious: No
  Sender: FDA-Public Use
  Company Number: US-009507513-1408USA001920

PATIENT
  Sex: Female

DRUGS (1)
  1. NUVARING [Suspect]
     Active Substance: ETHINYL ESTRADIOL\ETONOGESTREL
     Route: 067

REACTIONS (10)
  - Chest pain [Unknown]
  - Pain in extremity [Unknown]
  - Dyspnoea [Unknown]
  - Thrombectomy [Unknown]
  - Arthralgia [Unknown]
  - Joint manipulation [Unknown]
  - Thrombosis [Unknown]
  - Deep vein thrombosis [Unknown]
  - Knee arthroplasty [Unknown]
  - Haematoma evacuation [Unknown]

NARRATIVE: CASE EVENT DATE: 20100823
